FAERS Safety Report 8848067 (Version 2)
Quarter: 2012Q4

REPORT INFORMATION
  Report Type: 
  Country: US (occurrence: US)
  Receive Date: 20121018
  Receipt Date: 20121030
  Transmission Date: 20130627
  Serious: Yes (Hospitalization, Other)
  Sender: FDA-Public Use
  Company Number: US-ROCHE-1146528

PATIENT
  Age: 55 Year
  Sex: Male
  Weight: 103 kg

DRUGS (10)
  1. XELODA [Suspect]
     Indication: SQUAMOUS CELL CARCINOMA
     Route: 048
     Dates: start: 20120725, end: 20120807
  2. LAPATINIB [Suspect]
     Indication: SQUAMOUS CELL CARCINOMA
     Route: 048
     Dates: start: 20120725, end: 20120812
  3. LOMOTIL [Concomitant]
     Indication: DIARRHOEA
     Route: 048
     Dates: start: 20120809
  4. OXYCODONE [Concomitant]
     Indication: PAIN
     Dosage: 5-10 mg
     Route: 048
  5. TESTOSTERONE [Concomitant]
     Route: 048
  6. ZOFRAN [Concomitant]
     Indication: NAUSEA
     Route: 048
  7. VANCOMYCIN [Concomitant]
     Route: 065
     Dates: start: 20120812
  8. CEFTAZIDIME [Concomitant]
     Route: 065
     Dates: start: 20120812
  9. VITAMIN C [Concomitant]
     Route: 048
  10. VITAMIN E [Concomitant]
     Dosage: 400 units
     Route: 048

REACTIONS (5)
  - Pyrexia [Recovered/Resolved]
  - Dehydration [Unknown]
  - Diarrhoea [Recovered/Resolved]
  - Mucosal inflammation [Recovered/Resolved]
  - Neutropenia [Recovered/Resolved]
